FAERS Safety Report 10450259 (Version 1)
Quarter: 2014Q3

REPORT INFORMATION
  Report Type: Spontaneous
  Country: US (occurrence: None)
  Receive Date: 20140910
  Receipt Date: 20140910
  Transmission Date: 20150326
  Serious: No
  Sender: FDA-Public Use
  Company Number: 14007ADE

PATIENT
  Age: 62 Year
  Sex: Female

DRUGS (6)
  1. IODINE [Concomitant]
     Active Substance: IODINE
  2. POTASSIUM CITRATE (POTASSIUM CITRATE) TABLET, 10MEQ [Suspect]
     Active Substance: POTASSIUM CITRATE
     Indication: RENAL TUBULAR ACIDOSIS
     Route: 048
     Dates: start: 201307
  3. ZINC [Concomitant]
     Active Substance: ZINC\ZINC CHLORIDE
  4. MAGNESIUM [Concomitant]
     Active Substance: MAGNESIUM
  5. VITAMIN C [Concomitant]
     Active Substance: ASCORBIC ACID
  6. ARMOUR THYROID (THYROID) [Concomitant]

REACTIONS (1)
  - Malabsorption [None]

NARRATIVE: CASE EVENT DATE: 201312
